FAERS Safety Report 7691450-9 (Version None)
Quarter: 2011Q3

REPORT INFORMATION
  Report Type: 
  Country: None (occurrence: None)
  Receive Date: 20110818
  Receipt Date: 20110811
  Transmission Date: 20111222
  Serious: Yes (Death, Other)
  Sender: FDA-Public Use
  Company Number: PHHY2011JP47233

PATIENT
  Sex: Female
  Weight: 57 kg

DRUGS (12)
  1. VALSARTAN [Suspect]
     Indication: HYPERTENSION
     Dosage: 40 MG, QD
     Route: 048
     Dates: start: 20071220
  2. HOKUNALIN [Concomitant]
     Dosage: 2 MG, UNK
     Dates: start: 20071025, end: 20090619
  3. THEO-DUR [Concomitant]
     Dosage: 300 MG, UNK
     Route: 048
     Dates: start: 20071025, end: 20100619
  4. BUTIKINON [Concomitant]
     Dosage: 300 MG, UNK
     Route: 048
     Dates: start: 20071025, end: 20090619
  5. ZANTAC [Concomitant]
     Dosage: 150 MG, UNK
     Route: 048
     Dates: start: 20080108, end: 20080508
  6. DEPAS [Concomitant]
     Dosage: 1 MG, UNK
     Route: 048
     Dates: start: 20071025, end: 20090619
  7. MAIBASTAN [Concomitant]
     Dosage: 5 MG, UNK
     Route: 048
     Dates: start: 20080311, end: 20090619
  8. OMEPRAZOLE [Concomitant]
     Dosage: 10 MG, UNK
     Route: 048
     Dates: start: 20071025, end: 20080107
  9. LAPRAZOL [Concomitant]
     Dosage: 30 MG, UNK
     Route: 048
     Dates: start: 20080509, end: 20090619
  10. CONIEL [Concomitant]
     Indication: HYPERTENSION
     Dosage: 4 MG, UNK
     Route: 048
     Dates: start: 20070501
  11. LENDORMIN [Concomitant]
     Dosage: 0.25 MG, UNK
     Route: 048
     Dates: start: 20071025, end: 20090619
  12. GLORIAMIN [Concomitant]
     Dosage: 1.5 G, UNK
     Route: 048
     Dates: start: 20071025, end: 20090619

REACTIONS (3)
  - BLOOD PRESSURE DECREASED [None]
  - MARASMUS [None]
  - HYPERCHOLESTEROLAEMIA [None]
